FAERS Safety Report 4604742-4 (Version None)
Quarter: 2005Q1

REPORT INFORMATION
  Report Type: 
  Country: None (occurrence: None)
  Receive Date: 20050217
  Receipt Date: 20041029
  Transmission Date: 20050727
  Serious: No
  Sender: FDA-Public Use
  Company Number: S04-USA-07173-01

PATIENT
  Age: 75 Year
  Sex: Female

DRUGS (6)
  1. NAMENDA [Suspect]
     Indication: DEMENTIA
     Dosage: 5 MG QD PO
     Route: 048
     Dates: start: 20041013, end: 20041001
  2. NAMENDA [Suspect]
     Indication: DEMENTIA
     Dosage: 5 MG QD PO
     Route: 048
     Dates: start: 20041001, end: 20041021
  3. NAMENDA [Suspect]
     Indication: DEMENTIA
     Dosage: 5 MG BID PO
     Route: 048
     Dates: start: 20041022
  4. HEART PILL (NOS) [Concomitant]
  5. THYROID MEDICATION (NOS) [Concomitant]
  6. FOSAMAX [Concomitant]

REACTIONS (2)
  - CONFUSIONAL STATE [None]
  - FAECES DISCOLOURED [None]
